FAERS Safety Report 7544100-6 (Version None)
Quarter: 2011Q2

REPORT INFORMATION
  Report Type: 
  Country: None (occurrence: None)
  Receive Date: 20110613
  Receipt Date: 20051104
  Transmission Date: 20111010
  Serious: Yes (Hospitalization)
  Sender: FDA-Public Use
  Company Number: PHHO2005ES16487

PATIENT
  Sex: Male

DRUGS (3)
  1. RADIOTHERAPY [Concomitant]
  2. ANALGESICS [Concomitant]
  3. ZOMETA [Suspect]
     Indication: METASTASES TO BONE
     Dosage: 4 MG, UNK
     Route: 042
     Dates: start: 20021223

REACTIONS (2)
  - MELAENA [None]
  - DEEP VEIN THROMBOSIS [None]
